FAERS Safety Report 6733632-6 (Version None)
Quarter: 2010Q2

REPORT INFORMATION
  Report Type: 
  Country: None (occurrence: None)
  Receive Date: 20100520
  Receipt Date: 20100519
  Transmission Date: 20101027
  Serious: Yes (Other)
  Sender: FDA-Public Use
  Company Number: IT-ROXANE LABORATORIES, INC.-2010-RO-00590RO

PATIENT
  Age: 57 Year
  Sex: Male

DRUGS (2)
  1. METHOTREXATE [Suspect]
     Indication: PSORIASIS
     Route: 048
     Dates: start: 20081001
  2. FOLIC ACID [Suspect]
     Indication: PSORIASIS
     Dates: start: 20081001

REACTIONS (1)
  - PLEUROPERICARDITIS [None]
